FAERS Safety Report 9295449 (Version 2)
Quarter: 2013Q3

REPORT INFORMATION
  Report Type: Spontaneous
  Country: US (occurrence: US)
  Receive Date: 20130517
  Receipt Date: 20130712
  Transmission Date: 20140515
  Serious: Yes (Other)
  Sender: FDA-Public Use
  Company Number: US-BRISTOL-MYERS SQUIBB COMPANY-18876730

PATIENT
  Age: 60 Year
  Sex: Female

DRUGS (2)
  1. ORENCIA [Suspect]
     Indication: RHEUMATOID ARTHRITIS
     Dosage: LAST INFUSION WAS ON 25JAN2013, 20MAY2013 AND 17JUN2013
     Route: 042
  2. METHOTREXATE [Concomitant]

REACTIONS (2)
  - Ligament injury [Unknown]
  - Postoperative wound infection [Unknown]
